FAERS Safety Report 24149123 (Version 5)
Quarter: 2024Q4

REPORT INFORMATION
  Report Type: Spontaneous
  Country: US (occurrence: US)
  Receive Date: 20240729
  Receipt Date: 20241029
  Transmission Date: 20250115
  Serious: No
  Sender: MERCK
  Company Number: US-009507513-2407USA000887

PATIENT
  Sex: Male
  Weight: 103.4 kg

DRUGS (13)
  1. WINREVAIR [Suspect]
     Active Substance: SOTATERCEPT-CSRK
     Indication: Product used for unknown indication
     Dosage: 0.6 MILLILITER, Q3W
  2. WINREVAIR [Suspect]
     Active Substance: SOTATERCEPT-CSRK
     Dosage: 0.3 MILLIGRAM/KILOGRAM
  3. REMODULIN [Suspect]
     Active Substance: TREPROSTINIL
     Indication: Pulmonary arterial hypertension
     Dosage: 0.016 UG/KG, CONTINUOUS (SELF-FILL CASSETTE WITH 2.4 MCL/HOUR)
     Route: 058
     Dates: start: 20231011
  4. REMODULIN [Suspect]
     Active Substance: TREPROSTINIL
     Dosage: 0.22 MICROGRAM PER KILOGRAM (SELF-FILL CASSETTE WITH 2.7 ML, RATE OF 30 MCL/H), CONTINUING
     Route: 058
  5. ADEMPAS [Concomitant]
     Active Substance: RIOCIGUAT
  6. POTASSIUM CHLORIDE [Concomitant]
     Active Substance: POTASSIUM CHLORIDE
  7. MAGNESIUM OXIDE [Concomitant]
     Active Substance: MAGNESIUM OXIDE
  8. FAMOTIDINE [Concomitant]
     Active Substance: FAMOTIDINE
  9. WARFARIN SODIUM [Concomitant]
     Active Substance: WARFARIN SODIUM
  10. ATORVASTATIN CALCIUM [Concomitant]
     Active Substance: ATORVASTATIN CALCIUM
  11. AMBRISENTAN [Concomitant]
     Active Substance: AMBRISENTAN
  12. SPIRONOLACTONE [Concomitant]
     Active Substance: SPIRONOLACTONE
  13. HYDROCHLOROTHIAZIDE [Concomitant]
     Active Substance: HYDROCHLOROTHIAZIDE

REACTIONS (4)
  - Nausea [Unknown]
  - Diarrhoea [Unknown]
  - Haemoglobin increased [Unknown]
  - Vision blurred [Unknown]

NARRATIVE: CASE EVENT DATE: 20240101
